FAERS Safety Report 21150325 (Version 2)
Quarter: 2022Q3

REPORT INFORMATION
  Report Type: Spontaneous
  Country: US (occurrence: US)
  Receive Date: 20220729
  Receipt Date: 20220901
  Transmission Date: 20221026
  Serious: Yes (Hospitalization, Other)
  Sender: FDA-Public Use
  Company Number: US-Fresenius Medical Care Renal Therapies Group-FMC-2207-001069

PATIENT
  Age: 70 Year
  Sex: Female
  Weight: 96.8 kg

DRUGS (1)
  1. DELFLEX WITH DEXTROSE 2.5% LOW MAGNESIUM LOW CALCIUM [Suspect]
     Active Substance: CALCIUM CHLORIDE\DEXTROSE\MAGNESIUM CHLORIDE\SODIUM CHLORIDE\SODIUM LACTATE
     Indication: End stage renal disease
     Dosage: FV =2500 ML FOR 5 CYCLES WITH A LAST FILL OF 2000 ML AND NO DAYTIME EXCHANGE
     Route: 033

REACTIONS (1)
  - Peritonitis bacterial [Recovering/Resolving]
